FAERS Safety Report 13397919 (Version 2)
Quarter: 2018Q1

REPORT INFORMATION
  Report Type: Report from Study
  Country: CA (occurrence: CA)
  Receive Date: 20170403
  Receipt Date: 20180111
  Transmission Date: 20180508
  Serious: Yes (Death, Hospitalization)
  Sender: FDA-Public Use
  Company Number: CA-HLSUS-2017-CA-000296

PATIENT
  Age: 67 Year
  Sex: Male
  Weight: 79 kg

DRUGS (15)
  1. ACETAMINOPHEN. [Concomitant]
     Active Substance: ACETAMINOPHEN
  2. DICYCLOMINE [Concomitant]
     Active Substance: DICYCLOMINE HYDROCHLORIDE
  3. MEMANTINE. [Concomitant]
     Active Substance: MEMANTINE
  4. ROSUVASTATIN CALCIUM. [Concomitant]
     Active Substance: ROSUVASTATIN CALCIUM
  5. VALPROIC ACID. [Concomitant]
     Active Substance: VALPROIC ACID
  6. CLOZAPINE. [Suspect]
     Active Substance: CLOZAPINE
     Indication: PRODUCT USED FOR UNKNOWN INDICATION
  7. METFORMIN HYDROCHLORIDE. [Concomitant]
     Active Substance: METFORMIN HYDROCHLORIDE
  8. SENNOSIDE [Concomitant]
     Active Substance: SENNOSIDES
  9. RIVASTIGMINE. [Concomitant]
     Active Substance: RIVASTIGMINE
  10. LORAZEPAM. [Concomitant]
     Active Substance: LORAZEPAM
  11. ENALAPRIL [Concomitant]
     Active Substance: ENALAPRIL
  12. HYDROCHLOROTHIAZIDE. [Concomitant]
     Active Substance: HYDROCHLOROTHIAZIDE
  13. TAMSULOSIN [Concomitant]
     Active Substance: TAMSULOSIN
  14. BISACODYL. [Concomitant]
     Active Substance: BISACODYL
  15. LURASIDONE HYDROCHLORIDE [Concomitant]
     Active Substance: LURASIDONE HYDROCHLORIDE

REACTIONS (5)
  - Blood triglycerides increased [Fatal]
  - Monocyte count increased [Fatal]
  - Haemoglobin decreased [Fatal]
  - Pneumonia aspiration [Fatal]
  - Respiratory distress [Fatal]
